FAERS Safety Report 8670482 (Version 5)
Quarter: 2012Q4

REPORT INFORMATION
  Report Type: 
  Country: US (occurrence: US)
  Receive Date: 20120718
  Receipt Date: 20121121
  Transmission Date: 20130627
  Serious: Yes (Hospitalization, Other)
  Sender: FDA-Public Use
  Company Number: US-ASTRAZENECA-2012SE47326

PATIENT
  Age: 59 Year
  Sex: Female

DRUGS (23)
  1. SYMBICORT PMDI [Suspect]
     Indication: CHRONIC OBSTRUCTIVE PULMONARY DISEASE
     Route: 055
     Dates: start: 200807
  2. SYMBICORT PMDI [Suspect]
     Indication: CHRONIC OBSTRUCTIVE PULMONARY DISEASE
     Dosage: 160/4.5 MCG TWO PUFFS BY INHALATION TWO TIMES DAILY
     Route: 055
     Dates: start: 20120810
  3. LISINOPRIL HYDROCHLOROTHIAZIDE [Suspect]
     Indication: BLOOD PRESSURE ABNORMAL
     Route: 048
  4. OMEPRAZOLE [Suspect]
     Route: 048
  5. FLEXERIL [Concomitant]
     Indication: MUSCLE SPASMS
     Route: 048
     Dates: start: 20120806
  6. BYSTOLIC [Concomitant]
     Indication: BLOOD PRESSURE ABNORMAL
     Route: 048
     Dates: start: 20120803
  7. XANAX [Concomitant]
     Indication: ANXIETY
     Route: 048
     Dates: start: 20120731
  8. NORCO [Concomitant]
     Indication: PAIN
     Dosage: 5/325 MG TAKES ONE TO TWO TABLET EVERY SIX HOURS AN AS NEEDED
     Route: 048
     Dates: start: 20120719
  9. COLACE [Concomitant]
     Route: 048
     Dates: start: 20120719
  10. COUMADIN [Concomitant]
     Route: 048
     Dates: start: 20120719
  11. BAYER [Concomitant]
     Route: 048
     Dates: start: 20120719
  12. LIPITOR [Concomitant]
     Route: 048
     Dates: start: 20120601
  13. ULTRAM [Concomitant]
     Indication: PAIN
     Dosage: 50 MG TAKES ONE TO TWO BY MOUTH EVERY 6 HOURS AND AS NEEDED
     Route: 048
     Dates: start: 20120514
  14. AMBIEN [Concomitant]
     Indication: INSOMNIA
     Route: 048
     Dates: start: 20120402
  15. PROCARDIA - XL [Concomitant]
     Indication: BLOOD PRESSURE ABNORMAL
     Route: 048
     Dates: start: 20120117
  16. HYDROCHLOROTHIAZIDE [Concomitant]
     Indication: BLOOD PRESSURE ABNORMAL
     Route: 048
     Dates: start: 20111201
  17. ASTELIN [Concomitant]
     Indication: NASAL CONGESTION
     Dosage: 137 MCG BOTH NOSTRIL SPRAY EVERY 12 HOURS AND AS NEEDED
     Route: 055
     Dates: start: 20111111
  18. FLONASE [Concomitant]
     Dosage: 50 MCG TWO TIMES DAILY
     Route: 055
     Dates: start: 20111031
  19. SENNOSIDE [Concomitant]
     Route: 048
     Dates: start: 20110725
  20. CALTRATE WITH VITAMIN D [Concomitant]
     Dosage: 600 MG (1,500 MG) - 400 UNIT DAILY
     Route: 048
     Dates: start: 20110725
  21. SPIRIVA HANDIHALER [Concomitant]
     Route: 055
     Dates: start: 20110609
  22. SINGULAIR [Concomitant]
     Route: 048
     Dates: start: 20110603
  23. DAILY VITE [Concomitant]
     Route: 048

REACTIONS (4)
  - Acetabulum fracture [Unknown]
  - Road traffic accident [Unknown]
  - Osteoarthritis [Unknown]
  - Impaired work ability [Unknown]
